FAERS Safety Report 20369954 (Version 8)
Quarter: 2022Q1

REPORT INFORMATION
  Report Type: Spontaneous
  Country: JP (occurrence: JP)
  Receive Date: 20220124
  Receipt Date: 20220309
  Transmission Date: 20220423
  Serious: Yes (Other)
  Sender: FDA-Public Use
  Company Number: JP-JNJFOC-20220139405

PATIENT
  Age: 60 Year
  Sex: Male

DRUGS (14)
  1. INVEGA [Suspect]
     Active Substance: PALIPERIDONE
     Indication: Schizophrenia
     Route: 048
     Dates: start: 20210630, end: 20220114
  2. RISPERDAL [Suspect]
     Active Substance: RISPERIDONE
     Indication: Schizophrenia
     Dosage: DOSE UNKNOWN
     Route: 048
  3. RISPERDAL [Suspect]
     Active Substance: RISPERIDONE
     Indication: Anxiety
     Dosage: LIQUID MEDICINE FOR INTERNAL USE, P.R.N
     Route: 048
  4. RISPERDAL [Suspect]
     Active Substance: RISPERIDONE
     Dosage: LIQUID MEDICINE FOR INTERNAL USE, IN THE MORNING, IN THE AFTERNOON, IN THE EVENING, AT BEDTIME
     Route: 048
     Dates: start: 20220115, end: 20220118
  5. RISPERDAL [Suspect]
     Active Substance: RISPERIDONE
     Dosage: P.R.N , IN THE EVENING
     Route: 048
     Dates: start: 202202
  6. RISPERDAL [Suspect]
     Active Substance: RISPERIDONE
     Indication: Schizophrenia
     Dosage: DOSE UNKNOWN
     Route: 048
  7. RISPERDAL [Suspect]
     Active Substance: RISPERIDONE
     Dosage: IN THE MORNING, IN THE AFTERNOON, IN THE EVENING, AT BEDTIME
     Route: 048
     Dates: start: 20220119, end: 2022
  8. RISPERDAL [Suspect]
     Active Substance: RISPERIDONE
     Dosage: IN THE MORNING, IN THE AFTERNOON AND EVENING
     Route: 048
  9. BROMAZEPAM [Concomitant]
     Active Substance: BROMAZEPAM
     Dosage: 2TABLETS IN THE MORNING1TABLET IN THE AFTERNOON2TABLETS IN THE EVENING
     Route: 048
  10. BROMAZEPAM [Concomitant]
     Active Substance: BROMAZEPAM
     Dosage: 1TABLET IN THE MORNING1TABLET IN THE AFTERNOON2TABLETS IN THE EVENING
     Route: 048
  11. BROMAZEPAM [Concomitant]
     Active Substance: BROMAZEPAM
     Dosage: 1TABLET IN THE AFTERNOON2TABLETS IN THE EVENING
     Route: 048
  12. BROMAZEPAM [Concomitant]
     Active Substance: BROMAZEPAM
     Dosage: IN THE EVENING
     Route: 048
  13. BROMAZEPAM [Concomitant]
     Active Substance: BROMAZEPAM
     Dosage: IN THE EVENING
     Route: 048
     Dates: start: 202201
  14. ALINAMIN F [Concomitant]
     Active Substance: FURSULTIAMINE HYDROCHLORIDE
     Dosage: DOSE UNKNOWN
     Route: 065

REACTIONS (9)
  - Altered state of consciousness [Recovered/Resolved]
  - Loss of consciousness [Recovering/Resolving]
  - Loss of personal independence in daily activities [Recovering/Resolving]
  - Abnormal behaviour [Recovering/Resolving]
  - Affect lability [Recovering/Resolving]
  - Poor quality sleep [Recovered/Resolved]
  - Treatment noncompliance [Unknown]
  - Inappropriate schedule of product administration [Unknown]
  - Off label use [Unknown]

NARRATIVE: CASE EVENT DATE: 20210101
